FAERS Safety Report 21648956 (Version 1)
Quarter: 2022Q4

REPORT INFORMATION
  Report Type: Spontaneous
  Country: BR (occurrence: BR)
  Receive Date: 20221128
  Receipt Date: 20221128
  Transmission Date: 20230113
  Serious: Yes (Other)
  Sender: FDA-Public Use
  Company Number: BR-002147023-NVSC2022BR265361

PATIENT
  Sex: Female
  Weight: 51 kg

DRUGS (2)
  1. VOTRIENT [Suspect]
     Active Substance: PAZOPANIB HYDROCHLORIDE
     Indication: Synovial sarcoma
     Dosage: 2 DOSAGE FORM, QD (C 60 COMP)
     Route: 065
     Dates: start: 202103
  2. VOTRIENT [Suspect]
     Active Substance: PAZOPANIB HYDROCHLORIDE
     Indication: Metastases to lung

REACTIONS (3)
  - Metastases to central nervous system [Unknown]
  - Drug ineffective [Unknown]
  - Off label use [Unknown]
